FAERS Safety Report 6298084-1 (Version None)
Quarter: 2009Q3

REPORT INFORMATION
  Report Type: 
  Country: None (occurrence: None)
  Receive Date: 20090804
  Receipt Date: 20090804
  Transmission Date: 20100115
  Serious: Yes (Hospitalization, Other)
  Sender: FDA-Public Use
  Company Number: None

PATIENT
  Age: 6 Year
  Sex: Male
  Weight: 23.1334 kg

DRUGS (4)
  1. ABILIFY [Suspect]
     Indication: BIPOLAR DISORDER
     Dosage: 5 MG ONE AT BEDTIME PO
     Route: 048
     Dates: start: 20090728, end: 20090801
  2. CONCERTA [Concomitant]
  3. CLONIDINE [Concomitant]
  4. IMIPRAMINE [Concomitant]

REACTIONS (6)
  - DRUG PRESCRIBING ERROR [None]
  - DYSARTHRIA [None]
  - FEAR [None]
  - LOSS OF CONSCIOUSNESS [None]
  - MUSCULOSKELETAL STIFFNESS [None]
  - THINKING ABNORMAL [None]
